FAERS Safety Report 7359189-7 (Version None)
Quarter: 2011Q1

REPORT INFORMATION
  Report Type: 
  Country: None (occurrence: None)
  Receive Date: 20110317
  Receipt Date: 20110308
  Transmission Date: 20110831
  Serious: Yes (Other)
  Sender: FDA-Public Use
  Company Number: US-ASTRAZENECA-2011SE08469

PATIENT
  Age: 62 Year
  Sex: Male

DRUGS (1)
  1. ACCOLATE [Suspect]
     Route: 048

REACTIONS (5)
  - MYOCARDIAL INFARCTION [None]
  - ASTHMA [None]
  - THROMBOSIS [None]
  - HAEMORRHAGE [None]
  - CHEST PAIN [None]
